FAERS Safety Report 24379212 (Version 1)
Quarter: 2024Q3

REPORT INFORMATION
  Report Type: Spontaneous
  Country: ES (occurrence: ES)
  Receive Date: 20240930
  Receipt Date: 20240930
  Transmission Date: 20241017
  Serious: Yes (Hospitalization)
  Sender: FRESENIUS KABI
  Company Number: None

PATIENT
  Age: 15 Year
  Sex: Female
  Weight: 78 kg

DRUGS (6)
  1. ADALIMUMAB [Suspect]
     Active Substance: ADALIMUMAB
     Indication: Hidradenitis
     Dosage: 2.0 JER PREC C/15 DAYS
     Route: 058
     Dates: start: 20240823
  2. SIBILLA Daily 2 MG/0.03 MG Film-coated tablets EFG , 3 x (21+7) tablet [Concomitant]
     Indication: Hidradenitis
     Dosage: 1.0 COMP C/24 H
     Route: 048
     Dates: start: 20240522
  3. EPIDUO FORTE 3 MG/G + 25 MG/G GEL, 1 multi-dose package de 45 g [Concomitant]
     Indication: Acne
     Dosage: 1.0 APLIC C/24 H
     Route: 061
     Dates: start: 20240720
  4. NOLOTIL 575 mg hard capsules, 20 capsules [Concomitant]
     Indication: Abdominal pain
     Dosage: 575.0 MG DECOCE
     Route: 048
     Dates: start: 20220228
  5. ALDACTONE 25 mg Film-coated tablet , 50 tablets [Concomitant]
     Indication: Hidradenitis
     Dosage: 25.0 MG DE
     Route: 048
     Dates: start: 20240522
  6. OMEPRAZOL STADA 40 mg CAPSULAS gastroresistant hard capsule, 56 capsul [Concomitant]
     Indication: Abdominal pain
     Dosage: 40.0 MG A-DE
     Route: 048
     Dates: start: 20220301

REACTIONS (2)
  - Pulmonary embolism [Recovering/Resolving]
  - Drug interaction [Recovering/Resolving]

NARRATIVE: CASE EVENT DATE: 20240909
